FAERS Safety Report 14664990 (Version 3)
Quarter: 2018Q2

REPORT INFORMATION
  Report Type: Spontaneous
  Country: US (occurrence: US)
  Receive Date: 20180321
  Receipt Date: 20180504
  Transmission Date: 20180711
  Serious: Yes (Other)
  Sender: FDA-Public Use
  Company Number: US-BAUSCH-BL-2018-006688

PATIENT
  Age: 18 Year
  Sex: Male

DRUGS (3)
  1. HYDROCHLOROTHIAZIDE 25 MG, LISINOPRIL 20 MG [Suspect]
     Active Substance: HYDROCHLOROTHIAZIDE\LISINOPRIL
     Indication: PRODUCT USED FOR UNKNOWN INDICATION
     Dosage: INGESTED MULTIPLE PILLS, WHICH WERE HALF BOTTLE FULL AS PER FAMILY
     Route: 048
  2. METFORMIN [Suspect]
     Active Substance: METFORMIN HYDROCHLORIDE
     Indication: PRODUCT USED FOR UNKNOWN INDICATION
     Dosage: INGESTED MULTIPLE PILLS, WHICH WERE HALF BOTTLE FULL AS PER FAMILY
     Route: 048
  3. AMLODIPINE [Suspect]
     Active Substance: AMLODIPINE BESYLATE
     Indication: PRODUCT USED FOR UNKNOWN INDICATION
     Dosage: INGESTED MULTIPLE PILLS, WHICH WERE HALF BOTTLE FULL AS PER FAMILY
     Route: 048

REACTIONS (8)
  - Lactic acidosis [Unknown]
  - Toxicity to various agents [Unknown]
  - Hypotension [Recovered/Resolved]
  - Sinus tachycardia [Recovered/Resolved]
  - Accidental exposure to product [Unknown]
  - Overdose [Unknown]
  - Renal failure [Unknown]
  - Vomiting [Recovered/Resolved]
